FAERS Safety Report 4641126-7 (Version None)
Quarter: 2005Q2

REPORT INFORMATION
  Report Type: 
  Country: None (occurrence: None)
  Receive Date: 20050419
  Receipt Date: 20050419
  Transmission Date: 20051028
  Serious: Yes (Death, Hospitalization)
  Sender: FDA-Public Use
  Company Number: None

PATIENT
  Age: 75 Year
  Sex: Female
  Weight: 48.5349 kg

DRUGS (2)
  1. CISPLATIN [Suspect]
     Indication: CERVIX CARCINOMA STAGE IV
     Dosage: 50 MG/M2 Q 3 WEEKS INTRAVENOUS
     Route: 042
     Dates: start: 20050221, end: 20050404
  2. TOPOTECAN [Suspect]
     Indication: CERVIX CARCINOMA STAGE IV
     Dosage: .75 MG/M2 DAYS 1-3 Q 3 W INTRAVENOU
     Route: 042
     Dates: start: 20040221, end: 20050406

REACTIONS (9)
  - ABDOMINAL DISTENSION [None]
  - CLOSTRIDIAL INFECTION [None]
  - FLATULENCE [None]
  - GRANULOCYTOPENIA [None]
  - HYPOTENSION [None]
  - NEUTROPENIC SEPSIS [None]
  - PULMONARY CONGESTION [None]
  - SYNCOPE [None]
  - THROMBOCYTOPENIA [None]
